FAERS Safety Report 7633857-1 (Version None)
Quarter: 2011Q3

REPORT INFORMATION
  Report Type: 
  Country: None (occurrence: None)
  Receive Date: 20110718
  Receipt Date: 20110701
  Transmission Date: 20111222
  Serious: Yes (Other)
  Sender: FDA-Public Use
  Company Number: THQ2011A03487

PATIENT
  Sex: Female

DRUGS (5)
  1. EXFORGE [Concomitant]
  2. BYETTA (EXENATIDE) [Concomitant]
  3. NEXIUM [Concomitant]
  4. PIOGLITAZONE HYDROCHLORIDE/METFORMIN HYDROCHLORIDE [Suspect]
     Indication: DIABETES MELLITUS
     Dosage: (PIOGLITAZONE HYDROCHLORIDE 15 MG/METFORMIN HYDROCHLORIDE 850 MG, 2 IN 1 D) 1) , PER ORAL
     Route: 048
     Dates: start: 20110501, end: 20110501
  5. GLIMEPIRIDE [Concomitant]

REACTIONS (2)
  - DYSPEPSIA [None]
  - ABDOMINAL PAIN UPPER [None]
